FAERS Safety Report 8021960-6 (Version None)
Quarter: 2012Q1

REPORT INFORMATION
  Report Type: 
  Country: None (occurrence: None)
  Receive Date: 20120104
  Receipt Date: 20111230
  Transmission Date: 20120608
  Serious: Yes (Congenital Anomaly, Other)
  Sender: FDA-Public Use
  Company Number: PHHY2011GB02081

PATIENT
  Sex: Male
  Weight: 2.74 kg

DRUGS (7)
  1. ACYCLOVIR [Suspect]
     Route: 064
  2. ACETAMINOPHEN [Suspect]
     Dosage: 7.5 MG, UNK
     Route: 064
  3. CEFADROXIL [Suspect]
     Route: 064
  4. DIHYDROCODEINE BITARTRATE INJ [Suspect]
     Route: 064
  5. CO-DANTHRAMER [Suspect]
  6. CLOTRIMAZOLE [Suspect]
  7. CODEINE PHOSPHATE [Suspect]
     Route: 064

REACTIONS (2)
  - STRABISMUS [None]
  - SPINA BIFIDA OCCULTA [None]
